FAERS Safety Report 15939430 (Version 5)
Quarter: 2020Q1

REPORT INFORMATION
  Report Type: Report from Study
  Country: US (occurrence: US)
  Receive Date: 20190208
  Receipt Date: 20200309
  Transmission Date: 20200409
  Serious: Yes (Hospitalization)
  Sender: FDA-Public Use
  Company Number: US-EISAI MEDICAL RESEARCH-EC-2018-048869

PATIENT
  Age: 49 Year
  Sex: Female

DRUGS (7)
  1. LENVIMA [Suspect]
     Active Substance: LENVATINIB
     Route: 048
     Dates: start: 20190529, end: 201910
  2. LENVIMA [Suspect]
     Active Substance: LENVATINIB
     Dosage: 4MG ALT W/8MG
     Route: 048
     Dates: start: 201910, end: 20191118
  3. LENVIMA [Suspect]
     Active Substance: LENVATINIB
     Route: 048
     Dates: start: 20181123, end: 201904
  4. LENVIMA [Suspect]
     Active Substance: LENVATINIB
     Route: 048
     Dates: start: 20191119, end: 202002
  5. LENVIMA [Suspect]
     Active Substance: LENVATINIB
     Indication: THYROID CANCER
     Route: 048
     Dates: start: 20180425, end: 201810
  6. VITAMIN D [Concomitant]
     Active Substance: VITAMIN D NOS
  7. LENVIMA [Suspect]
     Active Substance: LENVATINIB
     Dosage: 4MG ALTERNATIVE WITH 8MG
     Route: 048
     Dates: start: 20200224

REACTIONS (25)
  - Blood calcium decreased [Recovered/Resolved]
  - Decreased appetite [Recovered/Resolved]
  - Headache [Recovered/Resolved]
  - Erythema [Recovered/Resolved]
  - Malaise [Recovered/Resolved]
  - Off label use [Recovered/Resolved]
  - Hypocalcaemia [Recovered/Resolved]
  - Hypertension [Recovering/Resolving]
  - Food intolerance [Recovered/Resolved]
  - Dry skin [Recovered/Resolved]
  - Palmar-plantar erythrodysaesthesia syndrome [Recovered/Resolved]
  - Vomiting [Recovered/Resolved]
  - Skin burning sensation [Recovered/Resolved]
  - Decreased appetite [Not Recovered/Not Resolved]
  - Blood calcium increased [Recovered/Resolved]
  - Ovarian cyst [Recovered/Resolved]
  - Diarrhoea [Recovered/Resolved]
  - Hypotension [Recovered/Resolved]
  - Taste disorder [Recovered/Resolved]
  - Fatigue [Recovered/Resolved]
  - Urinary tract infection [Recovered/Resolved]
  - Blood iron decreased [Recovered/Resolved]
  - Malignant neoplasm progression [Not Recovered/Not Resolved]
  - Nausea [Recovered/Resolved]
  - Pain [Recovered/Resolved]

NARRATIVE: CASE EVENT DATE: 201804
